FAERS Safety Report 20240191 (Version 2)
Quarter: 2022Q1

REPORT INFORMATION
  Report Type: Spontaneous
  Country: DE (occurrence: DE)
  Receive Date: 20211228
  Receipt Date: 20220217
  Transmission Date: 20220423
  Serious: Yes (Other)
  Sender: FDA-Public Use
  Company Number: None

PATIENT
  Age: 29 Year
  Sex: Female
  Weight: 60 kg

DRUGS (1)
  1. LISDEXAMFETAMINE DIMESYLATE [Suspect]
     Active Substance: LISDEXAMFETAMINE DIMESYLATE
     Indication: Attention deficit hyperactivity disorder
     Dosage: 50 UNK
     Route: 048
     Dates: start: 20210201

REACTIONS (18)
  - Tunnel vision [Recovered/Resolved]
  - Hallucination, auditory [Recovered/Resolved]
  - Muscle tightness [Recovered/Resolved]
  - Excessive exercise [Recovered/Resolved]
  - Hyperreflexia [Recovered/Resolved]
  - Dyskinesia [Recovered/Resolved]
  - Hyperhidrosis [Recovered/Resolved]
  - Palpitations [Recovered/Resolved]
  - Vision blurred [Recovered/Resolved]
  - Euphoric mood [Recovered/Resolved]
  - Decreased appetite [Recovered/Resolved]
  - Overdose [Unknown]
  - Initial insomnia [Recovered/Resolved]
  - Speech disorder [Recovered/Resolved]
  - Feeling cold [Recovered/Resolved]
  - Change in sustained attention [Recovered/Resolved]
  - Heart rate increased [Recovered/Resolved]
  - Sedation [Recovered/Resolved]

NARRATIVE: CASE EVENT DATE: 20210201
